FAERS Safety Report 9874614 (Version 3)
Quarter: 2014Q2

REPORT INFORMATION
  Report Type: Report from Study
  Country: US (occurrence: US)
  Receive Date: 20140206
  Receipt Date: 20140602
  Transmission Date: 20141212
  Serious: No
  Sender: FDA-Public Use
  Company Number: PHEH2014US002523

PATIENT
  Age: 73 Year
  Sex: Male

DRUGS (13)
  1. TASIGNA [Suspect]
     Indication: CHRONIC MYELOID LEUKAEMIA
     Dosage: 150 MG, BID
     Route: 048
     Dates: start: 20140124
  2. CENTRUM [Concomitant]
     Dosage: UNK UKN, UNK
  3. EXCEDRIN [Concomitant]
     Dosage: UNK UKN, UNK
  4. VOLTAREN [Concomitant]
     Dosage: UNK UKN, UNK
  5. FLUTICASONE [Concomitant]
     Dosage: UNK UKN, UNK
  6. LORAZEPAM [Concomitant]
     Dosage: UNK UKN, UNK
  7. ALLOPURINOL [Concomitant]
     Dosage: UNK UKN, UNK
  8. PIOGLITAZONE [Concomitant]
     Dosage: UNK UKN, UNK
  9. AVODART [Concomitant]
     Dosage: UNK UKN, UNK
  10. OMEPRAZOLE [Concomitant]
     Dosage: UNK UKN, UNK
  11. DICLOFENAC [Concomitant]
     Dosage: UNK UKN, UNK
  12. PRAVASTATIN [Concomitant]
     Dosage: UNK UKN, UNK
  13. FOSINOPRIL [Concomitant]
     Dosage: UNK UKN, UNK

REACTIONS (4)
  - Constipation [Unknown]
  - Dyspepsia [Unknown]
  - Fatigue [Unknown]
  - Nausea [Not Recovered/Not Resolved]
